FAERS Safety Report 6415543-9 (Version None)
Quarter: 2009Q4

REPORT INFORMATION
  Report Type: 
  Country: None (occurrence: None)
  Receive Date: 20091027
  Receipt Date: 20090821
  Transmission Date: 20100525
  Serious: No
  Sender: FDA-Public Use
  Company Number: US-BAYER-200930808NA

PATIENT
  Age: 53 Year
  Sex: Female
  Weight: 63 kg

DRUGS (8)
  1. ULTRAVIST 300 [Suspect]
     Indication: COMPUTERISED TOMOGRAM THORAX
     Dosage: TOTAL DAILY DOSE: 95 ML
     Route: 042
     Dates: start: 20090821, end: 20090821
  2. PROVENTIL-HFA [Concomitant]
  3. ALBUTEROL [Concomitant]
  4. ADVAIR DISKUS 100/50 [Concomitant]
  5. NASONEX [Concomitant]
  6. LIPITOR [Concomitant]
  7. ASPIRIN [Concomitant]
  8. VOLUMEN [Concomitant]
     Route: 048
     Dates: start: 20090821, end: 20090821

REACTIONS (1)
  - PRURITUS [None]
